FAERS Safety Report 6067583-X (Version None)
Quarter: 2009Q1

REPORT INFORMATION
  Report Type: 
  Country: None (occurrence: None)
  Receive Date: 20090205
  Receipt Date: 20090202
  Transmission Date: 20090719
  Serious: No
  Sender: FDA-Public Use
  Company Number: US-B.I. PHARMACEUTICALS,INC./RIDGEFIELD-2007-BP-26338BP

PATIENT
  Age: 80 Year
  Sex: Female

DRUGS (8)
  1. CATAPRES-TTS-1 [Suspect]
     Indication: HYPERTENSION
     Dosage: .2MG
     Route: 061
     Dates: start: 20050101
  2. NORVASC [Concomitant]
     Indication: HYPERTENSION
     Dates: start: 20050101
  3. PLAVIX [Concomitant]
     Dates: start: 20040101
  4. ASPIRIN [Concomitant]
     Dates: start: 20040101
  5. ATIVAN [Concomitant]
  6. PEPCID [Concomitant]
  7. LIBREX [Concomitant]
     Indication: IRRITABLE BOWEL SYNDROME
     Dates: start: 20050101
  8. CLIMERA PATCH [Concomitant]

REACTIONS (4)
  - APPLICATION SITE RASH [None]
  - BLOOD PRESSURE INCREASED [None]
  - HEADACHE [None]
  - HYPERSENSITIVITY [None]
